FAERS Safety Report 9195311 (Version 2)
Quarter: 2013Q1

REPORT INFORMATION
  Report Type: Spontaneous
  Country: US (occurrence: US)
  Receive Date: 20130328
  Receipt Date: 20130328
  Transmission Date: 20140127
  Serious: No
  Sender: FDA-Public Use
  Company Number: US-ALLERGAN-1217011US

PATIENT
  Age: 66 Year
  Sex: Female

DRUGS (4)
  1. COMBIGAN[R] [Suspect]
     Indication: GLAUCOMA
     Dosage: 2 GTT, BID
     Route: 047
     Dates: start: 201207
  2. LUMIGAN [Suspect]
     Indication: GLAUCOMA
     Dosage: 2 GTT, QHS
     Route: 047
     Dates: start: 201207
  3. TEGRETOL [Concomitant]
     Indication: EPILEPSY
     Dosage: 200 MG, QD
     Route: 048
  4. SUPPLEMENT NOS [Concomitant]
     Indication: SUPPLEMENTATION THERAPY
     Dosage: UNK
     Route: 048

REACTIONS (5)
  - Somnolence [Recovered/Resolved]
  - Dizziness [Recovered/Resolved]
  - Ocular hyperaemia [None]
  - Eye irritation [None]
  - Glaucoma [None]
